FAERS Safety Report 9337427 (Version 1)
Quarter: 2013Q2

REPORT INFORMATION
  Report Type: Spontaneous
  Country: US (occurrence: US)
  Receive Date: 20130607
  Receipt Date: 20130607
  Transmission Date: 20140414
  Serious: Yes (Other)
  Sender: FDA-Public Use
  Company Number: US-ENDO PHARMACEUTICALS INC.-OPER20130012

PATIENT
  Sex: Male

DRUGS (2)
  1. OPANA ER [Suspect]
     Indication: DRUG ABUSE
     Route: 048
     Dates: start: 201107
  2. OPANA ER [Suspect]
     Route: 048
     Dates: start: 201107

REACTIONS (4)
  - Toxicity to various agents [Fatal]
  - Respiratory depression [Fatal]
  - Accidental overdose [Not Recovered/Not Resolved]
  - Drug abuse [Not Recovered/Not Resolved]
